FAERS Safety Report 7957863-2 (Version None)
Quarter: 2011Q4

REPORT INFORMATION
  Report Type: 
  Country: None (occurrence: None)
  Receive Date: 20111205
  Receipt Date: 20111122
  Transmission Date: 20120403
  Serious: Yes (Disabling)
  Sender: FDA-Public Use
  Company Number: IE-SANOFI-AVENTIS-2011SA072283

PATIENT
  Age: 74 Year
  Sex: Male

DRUGS (8)
  1. WARFARIN SODIUM [Concomitant]
     Indication: ATRIAL FIBRILLATION
     Route: 048
  2. PRAVASTATIN [Concomitant]
     Indication: CORONARY ARTERY DISEASE
     Route: 048
  3. CORONARY VASODILATORS [Concomitant]
     Indication: ATRIAL FIBRILLATION
     Dates: end: 20110921
  4. MULTAQ [Suspect]
     Indication: SINUS RHYTHM
     Route: 048
     Dates: start: 20110922, end: 20111003
  5. BISOPROLOL FUMARATE [Concomitant]
     Indication: ANGINA PECTORIS
     Route: 048
  6. ASPIRIN [Concomitant]
     Indication: CORONARY ARTERY DISEASE
     Route: 048
  7. MULTAQ [Suspect]
     Route: 048
     Dates: start: 20110922, end: 20111003
  8. CORONARY VASODILATORS [Concomitant]
     Dates: start: 20111003

REACTIONS (3)
  - DYSPNOEA [None]
  - PRODUCTIVE COUGH [None]
  - MALAISE [None]
